FAERS Safety Report 14632840 (Version 2)
Quarter: 2018Q3

REPORT INFORMATION
  Report Type: Spontaneous
  Country: TR (occurrence: TR)
  Receive Date: 20180313
  Receipt Date: 20180803
  Transmission Date: 20181010
  Serious: Yes (Hospitalization, Other)
  Sender: FDA-Public Use
  Company Number: TR-TEVA-2018-TR-869180

PATIENT
  Age: 65 Year
  Sex: Female
  Weight: 45 kg

DRUGS (12)
  1. CYCLOPHOSPHAMIDE. [Concomitant]
     Active Substance: CYCLOPHOSPHAMIDE
     Indication: BREAST CANCER
     Route: 042
     Dates: start: 20180201
  2. LASIX 40 MG TABLET [Concomitant]
     Indication: HYPERVOLAEMIA
     Dosage: 40 MILLIGRAM DAILY; LASIX 40 MG TABLET
     Route: 048
     Dates: start: 20180206
  3. LEVOTIRON 100 MCG TABLET [Concomitant]
     Indication: HYPOTHYROIDISM
     Route: 048
  4. EPIRUBICIN [Concomitant]
     Active Substance: EPIRUBICIN
     Indication: BREAST CANCER
     Route: 042
     Dates: start: 20180201
  5. ALDACTONE 25 MG TABLET [Concomitant]
     Indication: ASCITES
     Route: 048
  6. TEVAGRASTIM [Suspect]
     Active Substance: FILGRASTIM
     Indication: NEUTROPENIA
     Dosage: TEVAGRASTIM 30 MIU/0.5 ML
     Route: 058
     Dates: start: 20180207, end: 20180208
  7. CONTRAMAL 100 MG RETARD TABLET [Concomitant]
     Indication: PAIN
     Route: 048
  8. TEVAGRASTIM [Suspect]
     Active Substance: FILGRASTIM
     Indication: FEBRILE NEUTROPENIA
     Dosage: TEVAGRASTIM 48 MIU/0.8 ML
     Route: 058
     Dates: start: 20180209, end: 20180212
  9. CANDISEPT [Concomitant]
     Indication: OESOPHAGEAL CANDIDIASIS
     Dosage: 400 MILLIGRAM DAILY; UNKNOWN FORM STRENGTH
     Route: 042
     Dates: start: 20180207
  10. TAZOJECT [Concomitant]
     Indication: BACTERIAL INFECTION
     Dosage: 18 GRAM DAILY; UNKNOWN FORM STRENGTH
     Route: 042
     Dates: start: 20180206
  11. PROTECH 40 MG TABLET [Concomitant]
     Indication: GASTROOESOPHAGEAL REFLUX DISEASE
     Route: 048
  12. 5?FU [Concomitant]
     Active Substance: FLUOROURACIL
     Indication: BREAST CANCER
     Route: 042
     Dates: start: 20180201

REACTIONS (2)
  - Drug ineffective [Not Recovered/Not Resolved]
  - Bone marrow failure [Not Recovered/Not Resolved]

NARRATIVE: CASE EVENT DATE: 20180207
